FAERS Safety Report 24621086 (Version 1)
Quarter: 2024Q4

REPORT INFORMATION
  Report Type: Spontaneous
  Country: US (occurrence: US)
  Receive Date: 20241114
  Receipt Date: 20241114
  Transmission Date: 20250115
  Serious: No
  Sender: HERON
  Company Number: US-HERON THERAPEUTICS, INC-HRTX-2023-001011

PATIENT

DRUGS (1)
  1. CINVANTI [Suspect]
     Active Substance: APREPITANT
     Indication: Product used for unknown indication
     Dosage: 130 MILLIGRAM, SINGLE
     Route: 042
     Dates: start: 20231218, end: 20231218

REACTIONS (2)
  - Hypertension [Unknown]
  - Anxiety [Unknown]
